FAERS Safety Report 8157560-7 (Version None)
Quarter: 2012Q1

REPORT INFORMATION
  Report Type: 
  Country: None (occurrence: None)
  Receive Date: 20120222
  Receipt Date: 20110726
  Transmission Date: 20120608
  Serious: No
  Sender: FDA-Public Use
  Company Number: US-ASTRAZENECA-2011SE44834

PATIENT
  Age: 36 Year
  Sex: Female

DRUGS (2)
  1. SYMBICORT [Concomitant]
     Dosage: 160 MCG 2 PUFFS, TWICE EACH DAY
     Route: 055
     Dates: start: 20110720
  2. TENORMIN [Suspect]
     Route: 048

REACTIONS (2)
  - DRUG HYPERSENSITIVITY [None]
  - URTICARIA [None]
